FAERS Safety Report 14560672 (Version 1)
Quarter: 2018Q1

REPORT INFORMATION
  Report Type: Spontaneous
  Country: US (occurrence: US)
  Receive Date: 20180222
  Receipt Date: 20180222
  Transmission Date: 20180509
  Serious: Yes (Death, Hospitalization, Other)
  Sender: FDA-Public Use
  Company Number: US-B.I. PHARMACEUTICALS,INC./RIDGEFIELD-2018-BI-009751

PATIENT
  Age: 89 Year
  Sex: Female

DRUGS (1)
  1. SPIRIVA [Suspect]
     Active Substance: TIOTROPIUM BROMIDE MONOHYDRATE
     Indication: CHRONIC OBSTRUCTIVE PULMONARY DISEASE
     Route: 055
     Dates: start: 2015

REACTIONS (6)
  - Asthenia [Unknown]
  - Intestinal obstruction [Recovered/Resolved]
  - Pneumonia [Unknown]
  - Incontinence [Unknown]
  - Death [Fatal]
  - Musculoskeletal disorder [Unknown]

NARRATIVE: CASE EVENT DATE: 20171217
